FAERS Safety Report 10385681 (Version 1)
Quarter: 2014Q3

REPORT INFORMATION
  Report Type: Spontaneous
  Country: CN (occurrence: CN)
  Receive Date: 20140814
  Receipt Date: 20140814
  Transmission Date: 20150326
  Serious: Yes (Life-Threatening, Hospitalization, Other)
  Sender: FDA-Public Use
  Company Number: CN-WATSON-2014-17445

PATIENT
  Age: 45 Year
  Sex: Male

DRUGS (2)
  1. METHYLPREDNISOLONE (UNKNOWN) [Suspect]
     Active Substance: METHYLPREDNISOLONE
     Indication: DERMATOMYOSITIS
     Dosage: 80 MG, DAILY
     Route: 065
  2. METHOTREXATE [Concomitant]
     Active Substance: METHOTREXATE
     Indication: DERMATOMYOSITIS
     Dosage: 15 MG, 1/WEEK
     Route: 065

REACTIONS (3)
  - Tracheo-oesophageal fistula [Recovered/Resolved]
  - Chylothorax [Recovered/Resolved]
  - Pneumothorax [Recovered/Resolved]
